FAERS Safety Report 5225193-8 (Version None)
Quarter: 2007Q1

REPORT INFORMATION
  Report Type: 
  Country: None (occurrence: None)
  Receive Date: 20070131
  Receipt Date: 20070126
  Transmission Date: 20070707
  Serious: Yes (Other)
  Sender: FDA-Public Use
  Company Number: JP-AVENTIS-200710246JP

PATIENT
  Age: 57 Year
  Sex: Female

DRUGS (2)
  1. AMARYL [Suspect]
     Route: 048
     Dates: start: 20060825, end: 20070126
  2. METHYCOBAL                         /00056201/ [Concomitant]
     Dates: start: 20061001, end: 20061101

REACTIONS (1)
  - BLOOD POTASSIUM INCREASED [None]
